FAERS Safety Report 25185515 (Version 3)
Quarter: 2025Q2

REPORT INFORMATION
  Report Type: Report from Study
  Country: US (occurrence: US)
  Receive Date: 20250410
  Receipt Date: 20250609
  Transmission Date: 20250717
  Serious: Yes (Hospitalization, Other)
  Sender: ALEXION PHARMACEUTICALS
  Company Number: US-AstraZeneca-CH-00841903A

PATIENT

DRUGS (2)
  1. ULTOMIRIS [Suspect]
     Active Substance: RAVULIZUMAB-CWVZ
     Indication: Myasthenia gravis
     Route: 065
  2. Immunoglobulin [Concomitant]
     Route: 065

REACTIONS (15)
  - Seizure [Unknown]
  - Atrial fibrillation [Unknown]
  - Feeling abnormal [Unknown]
  - Loss of personal independence in daily activities [Unknown]
  - Fatigue [Recovering/Resolving]
  - Headache [Unknown]
  - Hypersomnia [Unknown]
  - Muscular weakness [Unknown]
  - Decreased appetite [Unknown]
  - Blood electrolytes decreased [Unknown]
  - Swelling [Unknown]
  - Dyspnoea [Unknown]
  - Blood potassium decreased [Unknown]
  - Blood magnesium decreased [Unknown]
  - Gait disturbance [Unknown]
